FAERS Safety Report 6979131-8 (Version None)
Quarter: 2010Q3

REPORT INFORMATION
  Report Type: 
  Country: None (occurrence: None)
  Receive Date: 20100913
  Receipt Date: 20100902
  Transmission Date: 20110219
  Serious: Yes (Hospitalization, Other)
  Sender: FDA-Public Use
  Company Number: PHHY2010BR58670

PATIENT
  Sex: Female

DRUGS (5)
  1. DIOVAN [Suspect]
     Indication: HYPERTENSION
     Dosage: 1 TABLET (80 MG) A DAY
     Route: 048
     Dates: start: 20060101
  2. DIOVAN [Suspect]
     Dosage: 320 MG, UNK
     Route: 048
     Dates: start: 20100901
  3. SIMVASTATIN [Concomitant]
     Indication: CORONARY REVASCULARISATION
     Dosage: 1 TABLET A DAY
     Route: 048
     Dates: start: 20000101
  4. ASPIRIN [Concomitant]
     Indication: CORONARY REVASCULARISATION
     Dosage: 1 TABLET A DAY
     Route: 048
     Dates: start: 20000101
  5. MONOCORDIL [Concomitant]
     Indication: CORONARY REVASCULARISATION
     Dosage: 1 TABLET A DAY
     Dates: start: 20000101

REACTIONS (2)
  - BLOOD PRESSURE INCREASED [None]
  - OBESITY SURGERY [None]
